FAERS Safety Report 8498458-4 (Version None)
Quarter: 2012Q3

REPORT INFORMATION
  Report Type: 
  Country: None (occurrence: None)
  Receive Date: 20120709
  Receipt Date: 20120625
  Transmission Date: 20120928
  Serious: No
  Sender: FDA-Public Use
  Company Number: US-AMGEN-USASP2011009914

PATIENT
  Sex: Male

DRUGS (2)
  1. ENBREL [Suspect]
     Indication: PSORIASIS
     Dosage: 50 MG, 2 TIMES/WK
     Dates: start: 20040101
  2. ULTRAVATE                          /00008504/ [Concomitant]
     Indication: PSORIASIS
     Dosage: UNK UNK, BID
     Route: 061
     Dates: start: 20120328

REACTIONS (7)
  - THROAT IRRITATION [None]
  - PSORIASIS [None]
  - FATIGUE [None]
  - LARYNGITIS [None]
  - PAIN [None]
  - ROAD TRAFFIC ACCIDENT [None]
  - COUGH [None]
